FAERS Safety Report 11281178 (Version 1)
Quarter: 2015Q3

REPORT INFORMATION
  Report Type: Report from Study
  Country: DE (occurrence: DE)
  Receive Date: 20150717
  Receipt Date: 20150717
  Transmission Date: 20151125
  Serious: Yes (Death, Other)
  Sender: FDA-Public Use
  Company Number: DE-GLAXOSMITHKLINE-DE2015GSK102555

PATIENT
  Sex: Male
  Weight: 93.6 kg

DRUGS (1)
  1. PAZOPANIB [Suspect]
     Active Substance: PAZOPANIB
     Indication: RENAL CELL CARCINOMA
     Dosage: 800 MG, QD
     Route: 048
     Dates: start: 20150420, end: 20150624

REACTIONS (3)
  - Pneumonia [Fatal]
  - Acute kidney injury [Fatal]
  - Metastases to peritoneum [Fatal]

NARRATIVE: CASE EVENT DATE: 20150618
